FAERS Safety Report 17645862 (Version 2)
Quarter: 2020Q2

REPORT INFORMATION
  Report Type: Spontaneous
  Country: GB (occurrence: GB)
  Receive Date: 20200408
  Receipt Date: 20200515
  Transmission Date: 20200713
  Serious: Yes (Hospitalization)
  Sender: FDA-Public Use
  Company Number: GB-MYLANLABS-2020M1035164

PATIENT
  Sex: Female
  Weight: 99.1 kg

DRUGS (1)
  1. CLOZARIL [Suspect]
     Active Substance: CLOZAPINE
     Indication: SCHIZOPHRENIA
     Dosage: (100MG OM+200 MG ON)
     Route: 048
     Dates: start: 20010701, end: 20200328

REACTIONS (2)
  - Impaired self-care [Recovering/Resolving]
  - Necrotising fasciitis [Recovering/Resolving]
